FAERS Safety Report 6514890-X (Version None)
Quarter: 2009Q4

REPORT INFORMATION
  Report Type: 
  Country: None (occurrence: None)
  Receive Date: 20091223
  Receipt Date: 20091216
  Transmission Date: 20100525
  Serious: Yes (Other)
  Sender: FDA-Public Use
  Company Number: DE-ASTRAZENECA-2009SE24445

PATIENT
  Age: 27648 Day
  Sex: Female
  Weight: 70 kg

DRUGS (6)
  1. NAROPIN [Suspect]
     Indication: ANAESTHESIA
     Route: 008
     Dates: start: 20091020, end: 20091020
  2. NAROPIN [Suspect]
     Route: 008
     Dates: start: 20091020, end: 20091020
  3. NAROPIN [Suspect]
     Dosage: 200 MG WITH BASAL RATE OF 5 ML/H AND A BOLUS OF 3 ML/H
     Route: 008
     Dates: start: 20091020, end: 20091023
  4. SUFENTANIL CITRATE [Suspect]
     Indication: POSTOPERATIVE ANALGESIA
     Route: 008
     Dates: start: 20091020, end: 20091020
  5. SUFENTANIL CITRATE [Suspect]
     Dosage: 5 MG WITH BASAL RATE OF 5 ML/H AND A BOLUS OF 3 ML/H
     Route: 008
     Dates: start: 20091020, end: 20091023
  6. CARBOSTESIN [Concomitant]
     Indication: ANAESTHESIA
     Route: 008
     Dates: start: 20091020

REACTIONS (1)
  - CAUDA EQUINA SYNDROME [None]
